FAERS Safety Report 18340455 (Version 2)
Quarter: 2020Q4

REPORT INFORMATION
  Report Type: Spontaneous
  Country: US (occurrence: US)
  Receive Date: 20201002
  Receipt Date: 20201006
  Transmission Date: 20210113
  Serious: No
  Sender: FDA-Public Use
  Company Number: US-PFIZER INC-2020378998

PATIENT
  Sex: Male

DRUGS (1)
  1. ZOLOFT [Suspect]
     Active Substance: SERTRALINE HYDROCHLORIDE
     Dosage: UNK (TAKING THE MEDICINE FOR A COUPLE OF WEEKS NOW)

REACTIONS (2)
  - Semen volume decreased [Unknown]
  - Sexual dysfunction [Unknown]
